FAERS Safety Report 4865164-4 (Version None)
Quarter: 2005Q4

REPORT INFORMATION
  Report Type: 
  Country: None (occurrence: None)
  Receive Date: 20051221
  Receipt Date: 20051221
  Transmission Date: 20060501
  Serious: No
  Sender: FDA-Public Use
  Company Number: None

PATIENT
  Age: 54 Year
  Sex: Male
  Weight: 121.564 kg

DRUGS (1)
  1. OLANZAPINE [Suspect]
     Dosage: PO
     Route: 048

REACTIONS (1)
  - BLOOD GLUCOSE INCREASED [None]
